FAERS Safety Report 5565873-8 (Version None)
Quarter: 2007Q4

REPORT INFORMATION
  Report Type: 
  Country: None (occurrence: None)
  Receive Date: 20071213
  Receipt Date: 20071203
  Transmission Date: 20080405
  Serious: Yes (Other)
  Sender: FDA-Public Use
  Company Number: 2007SP021395

PATIENT
  Age: 71 Year
  Sex: Male
  Weight: 51 kg

DRUGS (15)
  1. CLARITIN [Suspect]
     Indication: ECZEMA
     Dosage: 10 MG; PO
     Route: 048
     Dates: start: 20071012, end: 20071015
  2. RACOL [Concomitant]
  3. BAKTAR [Concomitant]
  4. ITRIZOLE [Concomitant]
  5. MUCOSTA [Concomitant]
  6. DEPAS [Concomitant]
  7. ISODINE [Concomitant]
  8. VALTREX [Concomitant]
  9. RITUXAN [Concomitant]
  10. ENDOXAN [Concomitant]
  11. ADRIAMYCIN PFS [Concomitant]
  12. ONCOVIN [Concomitant]
  13. PREDONINE [Concomitant]
  14. CHLOR-TRIMETON [Concomitant]
  15. NEU-UP [Concomitant]

REACTIONS (1)
  - GENERALISED ERYTHEMA [None]
